FAERS Safety Report 9624225 (Version 3)
Quarter: 2013Q4

REPORT INFORMATION
  Report Type: Report from Study
  Country: JP (occurrence: JP)
  Receive Date: 20131015
  Receipt Date: 20131129
  Transmission Date: 20140711
  Serious: Yes (Hospitalization)
  Sender: FDA-Public Use
  Company Number: JP-ABBVIE-13X-087-1112930-00

PATIENT
  Age: 89 Year
  Sex: Male

DRUGS (9)
  1. LIPACREON [Suspect]
     Indication: PANCREATIC INSUFFICIENCY
     Route: 048
     Dates: start: 20130529, end: 20130919
  2. LANSOPRAZOLE [Concomitant]
     Indication: PROPHYLAXIS
     Route: 048
  3. LANSOPRAZOLE [Concomitant]
     Indication: ULCER
  4. DIGOXIN [Concomitant]
     Indication: PANCREATIC INSUFFICIENCY
     Route: 048
  5. DIGOXIN [Concomitant]
     Indication: ATRIAL FIBRILLATION
  6. CARVEDILOL [Concomitant]
     Indication: PANCREATIC INSUFFICIENCY
     Route: 048
  7. CARVEDILOL [Concomitant]
     Indication: HYPERTENSION
  8. LEVOTHYROXINE SODIUM [Concomitant]
     Indication: PANCREATIC INSUFFICIENCY
     Route: 048
  9. LEVOTHYROXINE SODIUM [Concomitant]
     Indication: HYPOTHYROIDISM

REACTIONS (5)
  - Cholangitis [Recovering/Resolving]
  - Pyrexia [Recovering/Resolving]
  - Abdominal pain [Recovering/Resolving]
  - Inflammation [Unknown]
  - Hepatic enzyme increased [Recovering/Resolving]
